FAERS Safety Report 4951484-1 (Version None)
Quarter: 2006Q1

REPORT INFORMATION
  Report Type: 
  Country: None (occurrence: None)
  Receive Date: 20060317
  Receipt Date: 20060306
  Transmission Date: 20060701
  Serious: Yes (Hospitalization, Other)
  Sender: FDA-Public Use
  Company Number: US200603001789

PATIENT
  Sex: Male

DRUGS (1)
  1. SYMBYAX [Suspect]
     Dosage: D/F
     Dates: start: 20060201

REACTIONS (3)
  - BLOOD TRIGLYCERIDES INCREASED [None]
  - DIABETES MELLITUS [None]
  - RENAL FAILURE [None]
